FAERS Safety Report 25431481 (Version 1)
Quarter: 2025Q2

REPORT INFORMATION
  Report Type: Spontaneous
  Country: US (occurrence: US)
  Receive Date: 20250613
  Receipt Date: 20250613
  Transmission Date: 20250717
  Serious: Yes (Other)
  Sender: CHEPLAPHARM
  Company Number: US-ROCHE-10000299248

PATIENT
  Age: 58 Year
  Sex: Male
  Weight: 77.559 kg

DRUGS (14)
  1. CLONAZEPAM [Suspect]
     Active Substance: CLONAZEPAM
     Indication: Product used for unknown indication
     Route: 048
  2. OCREVUS [Suspect]
     Active Substance: OCRELIZUMAB
     Indication: Relapsing-remitting multiple sclerosis
     Route: 042
  3. OCREVUS [Suspect]
     Active Substance: OCRELIZUMAB
     Indication: Relapsing-remitting multiple sclerosis
     Dosage: EVERY 6 MONTH
     Route: 042
  4. OXYMETAZOLINE [Concomitant]
     Active Substance: OXYMETAZOLINE
  5. SOLU-MEDROL [Concomitant]
     Active Substance: METHYLPREDNISOLONE SODIUM SUCCINATE
  6. ACETAMINOPHEN [Concomitant]
     Active Substance: ACETAMINOPHEN
  7. ATORVASTATIN [Concomitant]
     Active Substance: ATORVASTATIN
  8. METOPROLOL TARTRATE [Concomitant]
     Active Substance: METOPROLOL TARTRATE
  9. OMEPRAZOLE [Concomitant]
     Active Substance: OMEPRAZOLE
  10. PLAVIX [Concomitant]
     Active Substance: CLOPIDOGREL BISULFATE
  11. RAMIPRIL [Concomitant]
     Active Substance: RAMIPRIL
  12. SYNTHROID [Concomitant]
     Active Substance: LEVOTHYROXINE SODIUM
  13. ZETIA [Concomitant]
     Active Substance: EZETIMIBE
  14. TIZANIDINE [Concomitant]
     Active Substance: TIZANIDINE

REACTIONS (15)
  - Deafness [Unknown]
  - Pain in extremity [Unknown]
  - Gait disturbance [Unknown]
  - Dizziness [Unknown]
  - Hiccups [Recovered/Resolved]
  - Constipation [Recovering/Resolving]
  - Peroneal nerve palsy [Unknown]
  - Pain [Unknown]
  - Arthralgia [Unknown]
  - Paraesthesia [Unknown]
  - Muscle spasms [Unknown]
  - Fatigue [Unknown]
  - Dysphagia [Unknown]
  - Cognitive disorder [Unknown]
  - Vertigo [Recovered/Resolved]
